FAERS Safety Report 8605077-5 (Version None)
Quarter: 2012Q3

REPORT INFORMATION
  Report Type: 
  Country: None (occurrence: None)
  Receive Date: 20120820
  Receipt Date: 20120810
  Transmission Date: 20120928
  Serious: Yes (Other)
  Sender: FDA-Public Use
  Company Number: PHEH2012US016170

PATIENT
  Sex: Male

DRUGS (5)
  1. DEXAMETHASONE [Concomitant]
  2. AREDIA [Suspect]
  3. CYTOXAN [Concomitant]
  4. ASPIRIN [Concomitant]
     Dosage: 81 MG, QD
  5. REVLIMID [Concomitant]

REACTIONS (27)
  - PARAPROTEINAEMIA [None]
  - BRADYCARDIA [None]
  - MITRAL VALVE INCOMPETENCE [None]
  - PITUITARY TUMOUR BENIGN [None]
  - HYPERTENSION [None]
  - OEDEMA PERIPHERAL [None]
  - TACHYCARDIA [None]
  - ANAEMIA [None]
  - TESTICULAR ATROPHY [None]
  - NEUROPATHY PERIPHERAL [None]
  - RENAL FAILURE CHRONIC [None]
  - MONOCLONAL GAMMOPATHY [None]
  - SPINAL OSTEOARTHRITIS [None]
  - ATRIAL FLUTTER [None]
  - BUNDLE BRANCH BLOCK RIGHT [None]
  - HYPERHOMOCYSTEINAEMIA [None]
  - ATRIOVENTRICULAR BLOCK [None]
  - ATRIAL FIBRILLATION [None]
  - AORTIC VALVE INCOMPETENCE [None]
  - HYPERLIPIDAEMIA [None]
  - MULTIPLE MYELOMA [None]
  - DYSPNOEA [None]
  - PNEUMONIA [None]
  - TENDON RUPTURE [None]
  - TOOTH DISORDER [None]
  - GOUT [None]
  - JAW DISORDER [None]
